FAERS Safety Report 10559905 (Version 3)
Quarter: 2016Q1

REPORT INFORMATION
  Report Type: Report from Study
  Country: DE (occurrence: DE)
  Receive Date: 20141103
  Receipt Date: 20160128
  Transmission Date: 20160525
  Serious: Yes (Hospitalization)
  Sender: FDA-Public Use
  Company Number: DE-JNJFOC-20141019834

PATIENT
  Age: 16 Year
  Sex: Male
  Weight: 55.7 kg

DRUGS (2)
  1. REMICADE [Suspect]
     Active Substance: INFLIXIMAB
     Indication: CROHN^S DISEASE
     Route: 042
     Dates: start: 20120817
  2. AZATHIOPRINE. [Concomitant]
     Active Substance: AZATHIOPRINE
     Route: 065

REACTIONS (1)
  - Anal abscess [Recovered/Resolved]

NARRATIVE: CASE EVENT DATE: 20141021
